FAERS Safety Report 11635443 (Version 3)
Quarter: 2015Q4

REPORT INFORMATION
  Report Type: Spontaneous
  Country: US (occurrence: US)
  Receive Date: 20151016
  Receipt Date: 20151105
  Transmission Date: 20160304
  Serious: Yes (Hospitalization)
  Sender: FDA-Public Use
  Company Number: US-ROCHE-ITM201506IM017407

PATIENT
  Age: 81 Year
  Sex: Female
  Weight: 61.74 kg

DRUGS (1)
  1. ESBRIET [Suspect]
     Active Substance: PIRFENIDONE
     Indication: IDIOPATHIC PULMONARY FIBROSIS
     Route: 048
     Dates: start: 20150608

REACTIONS (11)
  - Muscle spasms [Unknown]
  - Sunburn [Unknown]
  - Nausea [Unknown]
  - Rash [Unknown]
  - Abdominal discomfort [Unknown]
  - Constipation [Unknown]
  - Haemorrhoids [Unknown]
  - Dizziness [Unknown]
  - Somnolence [Unknown]
  - Dry skin [Unknown]
  - Diarrhoea [Unknown]

NARRATIVE: CASE EVENT DATE: 20150923
